FAERS Safety Report 8619249-7 (Version None)
Quarter: 2012Q3

REPORT INFORMATION
  Report Type: 
  Country: None (occurrence: None)
  Receive Date: 20120824
  Receipt Date: 20120820
  Transmission Date: 20120928
  Serious: Yes (Other)
  Sender: FDA-Public Use
  Company Number: JP-009507513-2012SP019818

PATIENT

DRUGS (32)
  1. AMOXAPINE [Concomitant]
     Indication: DEPRESSION
     Dosage: 50 MG, QD
     Route: 048
     Dates: start: 20110920, end: 20110921
  2. MIRTAZAPINE [Suspect]
     Dosage: 45 MG, QD
     Route: 048
     Dates: start: 20111011, end: 20111029
  3. PRAVASTATIN SODIUM [Concomitant]
     Indication: DYSLIPIDAEMIA
     Dosage: 10 MG, QD
     Route: 048
     Dates: end: 20100718
  4. MIANSERIN HYDRO. [Concomitant]
     Dosage: 20 MG, QD
     Route: 048
     Dates: start: 20120127, end: 20120216
  5. QUETIAPINE FUMARATE [Concomitant]
     Dosage: 25 MG, QD
     Route: 048
     Dates: start: 20111004, end: 20111010
  6. MIRTAZAPINE [Suspect]
     Dosage: 30 MG, QD
     Route: 048
     Dates: start: 20111030, end: 20111104
  7. AMOXAPINE [Concomitant]
     Dosage: 50 MG, QD
     Route: 048
     Dates: start: 20111021, end: 20111117
  8. SERTRALINE HYDROCHLORIDE [Concomitant]
     Dosage: 100 MG, QD
     Route: 048
     Dates: start: 20110824, end: 20110929
  9. MIANSERIN HYDRO. [Concomitant]
     Dosage: 60 MG, QD
     Route: 048
     Dates: start: 20110915, end: 20110929
  10. QUETIAPINE FUMARATE [Concomitant]
     Indication: DEPRESSION
     Dosage: 75 MG, QD
     Route: 048
     Dates: start: 20110922, end: 20110929
  11. QUETIAPINE FUMARATE [Concomitant]
     Dosage: 50 MG, QD
     Route: 048
     Dates: start: 20110930, end: 20111004
  12. BIPERIDEN HYDROCHLORIDE TAB [Concomitant]
     Dosage: 1 MG, QD
     Route: 048
     Dates: start: 20111021, end: 20111117
  13. MIRTAZAPINE [Suspect]
     Indication: DEPRESSION
     Dosage: 15 MG, QD
     Route: 048
     Dates: start: 20110930, end: 20111002
  14. AMOXAPINE [Concomitant]
     Dosage: 75 MG, QD
     Route: 048
     Dates: start: 20110922, end: 20110927
  15. AMOXAPINE [Concomitant]
     Dosage: 100 MG, QD
     Route: 048
     Dates: start: 20111011, end: 20111020
  16. FLUNITRAZEPAM [Concomitant]
     Indication: PRODUCT USED FOR UNKNOWN INDICATION
     Dosage: 1 MG, QD
     Route: 048
  17. MIANSERIN HYDRO. [Concomitant]
     Indication: PRODUCT USED FOR UNKNOWN INDICATION
     Dosage: 20 MG, QD
     Route: 048
     Dates: start: 20110906, end: 20110907
  18. PHENOBARBITAL TAB [Concomitant]
     Dosage: 2 DF, QD
     Route: 048
     Dates: start: 20111021, end: 20111215
  19. SERTRALINE HYDROCHLORIDE [Concomitant]
     Indication: DEPRESSION
     Dosage: 25 MG, QD
     Route: 048
     Dates: start: 20110809, end: 20110816
  20. MAGNESIUM OXIDE [Concomitant]
     Indication: CONSTIPATION
     Dosage: 1500 MG, QD
     Route: 048
     Dates: start: 20110920, end: 20110923
  21. MIRTAZAPINE [Suspect]
     Dosage: 30 MG, QD
     Route: 048
     Dates: start: 20111003, end: 20111010
  22. BIPERIDEN HYDROCHLORIDE TAB [Concomitant]
     Indication: EXTRAPYRAMIDAL DISORDER
     Dosage: 3 MG, QD
     Route: 048
     Dates: start: 20110914, end: 20111010
  23. LITHIUM CARBONATE [Concomitant]
     Indication: PRODUCT USED FOR UNKNOWN INDICATION
     Dosage: 1800 MG, QD
     Route: 048
     Dates: start: 20110921
  24. PRAVASTATIN SODIUM [Concomitant]
     Dosage: 5 MG, QD
     Route: 048
     Dates: start: 20100718
  25. AMOXAPINE [Concomitant]
     Dosage: 150 MG, QD
     Route: 048
     Dates: start: 20110928, end: 20111010
  26. PHENOBARBITAL TAB [Concomitant]
     Indication: PRODUCT USED FOR UNKNOWN INDICATION
     Dosage: 1 DF, QD
     Route: 048
     Dates: start: 20110824, end: 20110914
  27. PHENOBARBITAL TAB [Concomitant]
     Dosage: 3 DF, QD
     Route: 048
     Dates: start: 20110915, end: 20111020
  28. MIANSERIN HYDRO. [Concomitant]
     Dosage: 30 MG, QD
     Route: 048
     Dates: start: 20110908, end: 20110914
  29. MIANSERIN HYDRO. [Concomitant]
     Dosage: 30 MG, QD
     Route: 048
     Dates: start: 20110930, end: 20120126
  30. SERTRALINE HYDROCHLORIDE [Concomitant]
     Dosage: 50 MG, QD
     Route: 048
     Dates: start: 20110817, end: 20110824
  31. SERTRALINE HYDROCHLORIDE [Concomitant]
     Dosage: 50 MG, QD
     Route: 048
     Dates: start: 20110930, end: 20111002
  32. BIPERIDEN HYDROCHLORIDE TAB [Concomitant]
     Dosage: 2 MG, QD
     Route: 048
     Dates: start: 20111011, end: 20111020

REACTIONS (1)
  - LIVER DISORDER [None]
